FAERS Safety Report 15623150 (Version 1)
Quarter: 2018Q4

REPORT INFORMATION
  Report Type: Spontaneous
  Country: BR (occurrence: BR)
  Receive Date: 20181115
  Receipt Date: 20181115
  Transmission Date: 20190205
  Serious: Yes (Hospitalization)
  Sender: FDA-Public Use
  Company Number: BR-UCBSA-2018050118

PATIENT
  Sex: Female
  Weight: 31 kg

DRUGS (5)
  1. ZYXEM [Suspect]
     Active Substance: LEVOCETIRIZINE
     Indication: URTICARIA CHRONIC
     Dosage: 15 DROPS IN THE MORNING AND 15 AT NIGHT
     Dates: start: 2016
  2. PREDNISOLONE. [Concomitant]
     Active Substance: PREDNISOLONE
     Indication: HYPERSENSITIVITY
     Dosage: 10 ML, 2X/DAY (BID)
     Dates: end: 2018
  3. ZYXEM [Suspect]
     Active Substance: LEVOCETIRIZINE
     Dosage: 20 DROPS IN THE MORNING AND 20 DROPS AT NIGHT
     Dates: start: 201805
  4. HYDROXYZINE HYDROCHLORIDE. [Concomitant]
     Active Substance: HYDROXYZINE HYDROCHLORIDE
     Indication: HYPERSENSITIVITY
     Dosage: 7.5 ML, ONCE DAILY (QD)
     Dates: end: 2018
  5. RANITIDINE. [Concomitant]
     Active Substance: RANITIDINE
     Indication: GASTRIC DISORDER
     Dosage: 8 ML, 2X/DAY (BID)
     Route: 048
     Dates: start: 201810, end: 201810

REACTIONS (4)
  - Skin plaque [Recovered/Resolved]
  - Peripheral swelling [Unknown]
  - Performance status decreased [Unknown]
  - Mouth swelling [Unknown]

NARRATIVE: CASE EVENT DATE: 2018
